FAERS Safety Report 4727735-5 (Version None)
Quarter: 2005Q3

REPORT INFORMATION
  Report Type: 
  Country: None (occurrence: None)
  Receive Date: 20050727
  Receipt Date: 20050721
  Transmission Date: 20060218
  Serious: Yes (Hospitalization)
  Sender: FDA-Public Use
  Company Number: 2005FR-00141

PATIENT
  Age: 50 Year
  Sex: Female

DRUGS (3)
  1. ASPIRIN [Suspect]
     Indication: HEADACHE
     Route: 048
     Dates: start: 20050505, end: 20050627
  2. PARACETAMOL [Suspect]
     Route: 048
     Dates: start: 20050505, end: 20050627
  3. OMEPRAZOLE [Concomitant]

REACTIONS (2)
  - DIZZINESS [None]
  - MELAENA [None]
